FAERS Safety Report 20433463 (Version 5)
Quarter: 2023Q1

REPORT INFORMATION
  Report Type: Other
  Country: CA (occurrence: CA)
  Receive Date: 20220205
  Receipt Date: 20230131
  Transmission Date: 20230418
  Serious: Yes (Life-Threatening, Hospitalization, Other)
  Sender: FDA-Public Use
  Company Number: CA-CELLTRION INC.-2020CA035188

PATIENT

DRUGS (238)
  1. RITUXIMAB [Suspect]
     Active Substance: RITUXIMAB
     Indication: Sjogren^s syndrome
     Dosage: UNK
     Route: 042
  2. RITUXIMAB [Suspect]
     Active Substance: RITUXIMAB
     Indication: Rheumatoid arthritis
     Dosage: 1000.0 MILLIGRAM
     Route: 042
  3. RITUXIMAB [Suspect]
     Active Substance: RITUXIMAB
     Dosage: UNK
     Route: 042
  4. RITUXIMAB [Suspect]
     Active Substance: RITUXIMAB
     Dosage: 1000.0 MILLIGRAM
     Route: 042
  5. RITUXIMAB [Suspect]
     Active Substance: RITUXIMAB
     Dosage: 1000.0 MILLIGRAM
     Route: 042
  6. RITUXIMAB [Suspect]
     Active Substance: RITUXIMAB
     Dosage: 1000.0 MILLIGRAM
     Route: 042
  7. RITUXIMAB [Suspect]
     Active Substance: RITUXIMAB
     Dosage: UNK
     Route: 042
  8. RITUXIMAB [Suspect]
     Active Substance: RITUXIMAB
     Dosage: 1000.0 MILLIGRAM
     Route: 042
  9. RITUXIMAB [Suspect]
     Active Substance: RITUXIMAB
     Dosage: 1000.0 MILLIGRAM
     Route: 042
  10. RITUXIMAB [Suspect]
     Active Substance: RITUXIMAB
     Dosage: 1000.0 MILLIGRAM
     Route: 042
  11. RITUXIMAB [Suspect]
     Active Substance: RITUXIMAB
     Dosage: UNK
     Route: 042
  12. RITUXIMAB [Suspect]
     Active Substance: RITUXIMAB
     Dosage: 1000.0 MILLIGRAM
     Route: 042
  13. RITUXIMAB [Suspect]
     Active Substance: RITUXIMAB
     Dosage: 1000.0 MILLIGRAM
     Route: 042
  14. RITUXIMAB [Suspect]
     Active Substance: RITUXIMAB
     Dosage: 1000.0 MILLIGRAM
     Route: 042
  15. RITUXIMAB [Suspect]
     Active Substance: RITUXIMAB
     Dosage: UNK
     Route: 065
  16. ACETAMINOPHEN [Suspect]
     Active Substance: ACETAMINOPHEN
     Indication: Product used for unknown indication
     Dosage: 650.0 MILLIGRAM, 1 EVERY 1 DAYS
     Route: 048
  17. ACETAMINOPHEN [Suspect]
     Active Substance: ACETAMINOPHEN
     Indication: Product used for unknown indication
     Dosage: 650.0 MILLIGRAM, 1 EVERY 1 DAY
     Route: 048
  18. ALISKIREN [Suspect]
     Active Substance: ALISKIREN
     Indication: Product used for unknown indication
     Dosage: UNK
  19. ALISKIREN [Suspect]
     Active Substance: ALISKIREN
     Dosage: 150 MILLIGRAM
     Route: 048
  20. ALISKIREN HEMIFUMARATE [Suspect]
     Active Substance: ALISKIREN HEMIFUMARATE
     Indication: Product used for unknown indication
     Dosage: 150 MILLIGRAM
     Route: 065
  21. ALISKIREN HEMIFUMARATE [Suspect]
     Active Substance: ALISKIREN HEMIFUMARATE
     Indication: Off label use
     Dosage: 150 MILLIGRAM
     Route: 048
  22. ALISKIREN HEMIFUMARATE [Suspect]
     Active Substance: ALISKIREN HEMIFUMARATE
     Indication: Microalbuminuria
     Dosage: 150 MILLIGRAM, QD
     Route: 065
  23. ALISKIREN HEMIFUMARATE [Suspect]
     Active Substance: ALISKIREN HEMIFUMARATE
     Indication: Hypertension
     Dosage: 150 MILLIGRAM
     Route: 048
  24. ALISKIREN HEMIFUMARATE [Suspect]
     Active Substance: ALISKIREN HEMIFUMARATE
     Dosage: 150 MILLIGRAM, QD
     Route: 065
  25. ALISKIREN HEMIFUMARATE [Suspect]
     Active Substance: ALISKIREN HEMIFUMARATE
     Dosage: 150 MILLIGRAM, QD
     Route: 065
  26. ALISKIREN HEMIFUMARATE [Suspect]
     Active Substance: ALISKIREN HEMIFUMARATE
     Dosage: 300 MILLIGRAM, QD
     Route: 065
  27. ALISKIREN HEMIFUMARATE [Suspect]
     Active Substance: ALISKIREN HEMIFUMARATE
     Dosage: 300 MILLIGRAM, QD
     Route: 065
  28. ALISKIREN HEMIFUMARATE [Suspect]
     Active Substance: ALISKIREN HEMIFUMARATE
     Dosage: 300 MILLIGRAM, QD
     Route: 065
  29. ALISKIREN HEMIFUMARATE [Suspect]
     Active Substance: ALISKIREN HEMIFUMARATE
     Dosage: 300 MILLIGRAM, QD
     Route: 065
  30. ALTACE [Suspect]
     Active Substance: RAMIPRIL
     Indication: Product used for unknown indication
     Dosage: UNK
     Route: 048
  31. ALTACE [Suspect]
     Active Substance: RAMIPRIL
     Dosage: UNK
     Route: 048
  32. ALTACE [Suspect]
     Active Substance: RAMIPRIL
     Dosage: UNK
     Route: 065
  33. ALTACE [Suspect]
     Active Substance: RAMIPRIL
     Indication: Product used for unknown indication
     Route: 048
  34. AMLODIPINE BESYLATE [Suspect]
     Active Substance: AMLODIPINE BESYLATE
     Indication: Product used for unknown indication
     Dosage: UNK
     Route: 065
  35. AMLODIPINE BESYLATE [Suspect]
     Active Substance: AMLODIPINE BESYLATE
     Dosage: UNK
     Route: 048
  36. AMLODIPINE BESYLATE [Suspect]
     Active Substance: AMLODIPINE BESYLATE
     Dosage: 1 DOSAGE FORM
     Route: 048
  37. AMLODIPINE BESYLATE [Suspect]
     Active Substance: AMLODIPINE BESYLATE
     Dosage: 5 MILLIGRAM
     Route: 048
  38. AMLODIPINE BESYLATE [Suspect]
     Active Substance: AMLODIPINE BESYLATE
     Indication: Product used for unknown indication
     Route: 065
  39. ATACAND [Suspect]
     Active Substance: CANDESARTAN CILEXETIL
     Indication: Hypertension
     Dosage: UNK
     Route: 048
  40. ATACAND [Suspect]
     Active Substance: CANDESARTAN CILEXETIL
     Dosage: UNK
     Route: 048
  41. ATACAND [Suspect]
     Active Substance: CANDESARTAN CILEXETIL
     Indication: Hypertension
     Route: 048
  42. ATORVASTATIN CALCIUM [Suspect]
     Active Substance: ATORVASTATIN CALCIUM
     Indication: Product used for unknown indication
     Dosage: 20 MILLIGRAM, 1 EVERY 1 DAYS
     Route: 065
  43. BISOPROLOL [Suspect]
     Active Substance: BISOPROLOL
     Indication: Product used for unknown indication
     Route: 065
  44. BISOPROLOL [Suspect]
     Active Substance: BISOPROLOL
     Indication: Product used for unknown indication
     Route: 065
  45. CALCIUM CARBONATE [Suspect]
     Active Substance: CALCIUM CARBONATE
     Indication: Product used for unknown indication
     Route: 065
  46. CANDESARTAN CILEXETIL [Suspect]
     Active Substance: CANDESARTAN CILEXETIL
     Indication: Hypertension
     Route: 065
  47. CANDESARTAN CILEXETIL [Suspect]
     Active Substance: CANDESARTAN CILEXETIL
     Indication: Hypertension
     Route: 065
  48. CANDESARTAN CILEXETIL [Suspect]
     Active Substance: CANDESARTAN CILEXETIL
     Dosage: UNK
     Route: 048
  49. COSENTYX [Suspect]
     Active Substance: SECUKINUMAB
     Indication: Psoriatic arthropathy
     Dosage: 30 MILLIGRAM, 1/WEEK
     Route: 065
  50. COSENTYX [Suspect]
     Active Substance: SECUKINUMAB
     Indication: Psoriasis
     Dosage: 300 MILLIGRAM, 1 EVERY 1 MONTHS
     Route: 058
  51. COSENTYX [Suspect]
     Active Substance: SECUKINUMAB
     Indication: Hypertension
     Dosage: 300 MILLIGRAM
     Route: 058
  52. COSENTYX [Suspect]
     Active Substance: SECUKINUMAB
     Dosage: 30 MILLIGRAM, 1/WEEK
     Route: 065
  53. COSENTYX [Suspect]
     Active Substance: SECUKINUMAB
     Dosage: 30 MILLIGRAM, 1/WEEK
     Route: 065
  54. COSENTYX [Suspect]
     Active Substance: SECUKINUMAB
     Dosage: 300 MILLIGRAM
     Route: 058
  55. COSENTYX [Suspect]
     Active Substance: SECUKINUMAB
     Dosage: 300 MILLIGRAM
     Route: 058
  56. COSENTYX [Suspect]
     Active Substance: SECUKINUMAB
     Indication: Psoriatic arthropathy
     Dosage: 300 MILLIGRAM
     Route: 058
  57. COSENTYX [Suspect]
     Active Substance: SECUKINUMAB
     Indication: Psoriasis
     Dosage: UNK
     Route: 065
  58. COSENTYX [Suspect]
     Active Substance: SECUKINUMAB
     Indication: Hypertension
  59. GLICLAZIDE [Suspect]
     Active Substance: GLICLAZIDE
     Indication: Diabetes mellitus
     Dosage: UNK
     Route: 065
  60. GLICLAZIDE [Suspect]
     Active Substance: GLICLAZIDE
     Indication: Blood pressure measurement
     Dosage: UNK
     Route: 065
  61. GLICLAZIDE [Suspect]
     Active Substance: GLICLAZIDE
     Indication: Blood pressure abnormal
     Dosage: UNK
     Route: 065
  62. GLICLAZIDE [Suspect]
     Active Substance: GLICLAZIDE
     Dosage: UNK
     Route: 065
  63. GLICLAZIDE [Suspect]
     Active Substance: GLICLAZIDE
     Dosage: UNK
     Route: 065
  64. GLICLAZIDE [Suspect]
     Active Substance: GLICLAZIDE
     Dosage: UNK
     Route: 065
  65. GLICLAZIDE [Suspect]
     Active Substance: GLICLAZIDE
     Dosage: UNK
     Route: 065
  66. GLICLAZIDE [Suspect]
     Active Substance: GLICLAZIDE
     Dosage: UNK
     Route: 065
  67. GLICLAZIDE [Suspect]
     Active Substance: GLICLAZIDE
     Dosage: UNK
     Route: 048
  68. GLICLAZIDE [Suspect]
     Active Substance: GLICLAZIDE
     Dosage: UNK
     Route: 048
  69. GLICLAZIDE [Suspect]
     Active Substance: GLICLAZIDE
     Indication: Diabetes mellitus
     Dosage: UNK
     Route: 065
  70. GLICLAZIDE [Suspect]
     Active Substance: GLICLAZIDE
     Indication: Blood pressure measurement
     Dosage: UNK
     Route: 065
  71. DIMENHYDRINATE [Suspect]
     Active Substance: DIMENHYDRINATE
     Indication: Premedication
     Dosage: 50 MILLIGRAM
     Route: 065
  72. DIMENHYDRINATE [Suspect]
     Active Substance: DIMENHYDRINATE
     Dosage: 100 MILLIGRAM
     Route: 065
  73. DIMENHYDRINATE [Suspect]
     Active Substance: DIMENHYDRINATE
     Indication: Premedication
     Dosage: 50 MILLIGRAM
     Route: 065
  74. DIPHENHYDRAMINE HYDROCHLORIDE [Suspect]
     Active Substance: DIPHENHYDRAMINE HYDROCHLORIDE
     Indication: Premedication
     Dosage: 50 MG, 1 EVERY 1 DAY
     Route: 048
  75. DIPHENHYDRAMINE HYDROCHLORIDE [Suspect]
     Active Substance: DIPHENHYDRAMINE HYDROCHLORIDE
     Dosage: UNK
     Route: 065
  76. DIPHENHYDRAMINE HYDROCHLORIDE [Suspect]
     Active Substance: DIPHENHYDRAMINE HYDROCHLORIDE
     Dosage: 50 MG, 1 EVERY 1 DAY
     Route: 048
  77. DIPHENHYDRAMINE HYDROCHLORIDE [Suspect]
     Active Substance: DIPHENHYDRAMINE HYDROCHLORIDE
     Indication: Premedication
     Dosage: 50 MG, 1 EVERY 1 DAY
     Route: 048
  78. DIPHENHYDRAMINE HYDROCHLORIDE [Suspect]
     Active Substance: DIPHENHYDRAMINE HYDROCHLORIDE
     Dosage: 50 MG, 1 EVERY 1 DAY
     Route: 048
  79. DIPHENHYDRAMINE HYDROCHLORIDE [Suspect]
     Active Substance: DIPHENHYDRAMINE HYDROCHLORIDE
     Indication: Premedication
     Dosage: 50.0 MILLIGRAM, 1 EVERY 1 DAYS
     Route: 048
  80. DIPHENHYDRAMINE HYDROCHLORIDE [Suspect]
     Active Substance: DIPHENHYDRAMINE HYDROCHLORIDE
     Dosage: 50.0 MILLIGRAM, 1 EVERY 1 DAYS
     Route: 048
  81. ERGOCALCIFEROL [Suspect]
     Active Substance: ERGOCALCIFEROL
     Indication: Product used for unknown indication
     Dosage: UNK
     Route: 065
  82. ESOMEPRAZOLE [Suspect]
     Active Substance: ESOMEPRAZOLE
     Indication: Product used for unknown indication
     Dosage: UNK
     Route: 065
  83. ESOMEPRAZOLE [Suspect]
     Active Substance: ESOMEPRAZOLE
     Dosage: UNK
     Route: 048
  84. ESOMEPRAZOLE [Suspect]
     Active Substance: ESOMEPRAZOLE
     Indication: Product used for unknown indication
     Dosage: 40 MILLIGRAM
     Route: 065
  85. ESOMEPRAZOLE MAGNESIUM [Suspect]
     Active Substance: ESOMEPRAZOLE MAGNESIUM
     Indication: Product used for unknown indication
     Dosage: UNK
     Route: 048
  86. ESOMEPRAZOLE MAGNESIUM [Suspect]
     Active Substance: ESOMEPRAZOLE MAGNESIUM
     Dosage: UNK
     Route: 048
  87. ESOMEPRAZOLE MAGNESIUM [Suspect]
     Active Substance: ESOMEPRAZOLE MAGNESIUM
     Dosage: UNK
     Route: 048
  88. ESOMEPRAZOLE MAGNESIUM [Suspect]
     Active Substance: ESOMEPRAZOLE MAGNESIUM
     Dosage: UNK
     Route: 048
  89. ESOMEPRAZOLE MAGNESIUM [Suspect]
     Active Substance: ESOMEPRAZOLE MAGNESIUM
     Dosage: UNK
     Route: 048
  90. ESOMEPRAZOLE MAGNESIUM [Suspect]
     Active Substance: ESOMEPRAZOLE MAGNESIUM
     Dosage: UNK
     Route: 065
  91. ESOMEPRAZOLE MAGNESIUM [Suspect]
     Active Substance: ESOMEPRAZOLE MAGNESIUM
     Dosage: UNK
     Route: 065
  92. ESOMEPRAZOLE MAGNESIUM [Suspect]
     Active Substance: ESOMEPRAZOLE MAGNESIUM
     Indication: Product used for unknown indication
     Route: 048
  93. ESOMEPRAZOLE SODIUM [Suspect]
     Active Substance: ESOMEPRAZOLE SODIUM
     Indication: Product used for unknown indication
     Dosage: UNK
     Route: 042
  94. ESOMEPRAZOLE SODIUM [Suspect]
     Active Substance: ESOMEPRAZOLE SODIUM
     Dosage: UNK
     Route: 065
  95. ESOMEPRAZOLE SODIUM [Suspect]
     Active Substance: ESOMEPRAZOLE SODIUM
     Dosage: UNK
     Route: 042
  96. GLICLAZIDE [Suspect]
     Active Substance: GLICLAZIDE
     Indication: Diabetes mellitus
     Dosage: UNK
     Route: 065
  97. GLICLAZIDE [Suspect]
     Active Substance: GLICLAZIDE
     Indication: Blood pressure measurement
     Dosage: UNK
     Route: 065
  98. GLICLAZIDE [Suspect]
     Active Substance: GLICLAZIDE
     Indication: Diabetes mellitus
     Dosage: UNK
     Route: 048
  99. GLICLAZIDE [Suspect]
     Active Substance: GLICLAZIDE
     Indication: Blood pressure measurement
     Dosage: UNK
     Route: 065
  100. GLICLAZIDE [Suspect]
     Active Substance: GLICLAZIDE
     Indication: Blood pressure abnormal
     Dosage: UNK
     Route: 065
  101. GLICLAZIDE [Suspect]
     Active Substance: GLICLAZIDE
     Dosage: UNK
     Route: 065
  102. GRAVOL [Suspect]
     Active Substance: DIMENHYDRINATE
     Indication: Premedication
     Dosage: 50.0 MILLIGRAM, EVERY 1 DAY
     Route: 065
  103. GRAVOL [Suspect]
     Active Substance: DIMENHYDRINATE
     Dosage: 100.0 MILLIGRAM, 1 EVERY 1 DAYS
     Route: 065
  104. GRAVOL [Suspect]
     Active Substance: DIMENHYDRINATE
     Dosage: 50 MILLIGRAM
     Route: 065
  105. GRAVOL [Suspect]
     Active Substance: DIMENHYDRINATE
     Dosage: 50 MILLIGRAM
     Route: 065
  106. GRAVOL [Suspect]
     Active Substance: DIMENHYDRINATE
     Indication: Premedication
     Dosage: 50 MG, 1 EVERY 1 DAYS
     Route: 065
  107. GRAVOL [Suspect]
     Active Substance: DIMENHYDRINATE
     Dosage: 50 MG
     Route: 065
  108. IRBESARTAN [Suspect]
     Active Substance: IRBESARTAN
     Indication: Hypertension
     Dosage: 300 MILLIGRAM, QD
     Route: 065
  109. IRBESARTAN [Suspect]
     Active Substance: IRBESARTAN
     Dosage: 300 MILLIGRAM
     Route: 048
  110. IRBESARTAN [Suspect]
     Active Substance: IRBESARTAN
     Dosage: 1 DOSAGE FORM
     Route: 048
  111. LEVOTHYROXINE SODIUM [Suspect]
     Active Substance: LEVOTHYROXINE SODIUM
     Indication: Product used for unknown indication
     Route: 065
  112. LEVOTHYROXINE SODIUM [Suspect]
     Active Substance: LEVOTHYROXINE SODIUM
     Indication: Product used for unknown indication
     Route: 065
  113. LIPITOR [Suspect]
     Active Substance: ATORVASTATIN CALCIUM
     Indication: Product used for unknown indication
     Dosage: 20 MILLIGRAM, QD
     Route: 065
  114. LISINOPRIL [Suspect]
     Active Substance: LISINOPRIL
     Indication: Hypertension
     Dosage: UNK
     Route: 048
  115. LISINOPRIL [Suspect]
     Active Substance: LISINOPRIL
     Dosage: UNK
     Route: 048
  116. LISINOPRIL [Suspect]
     Active Substance: LISINOPRIL
     Dosage: UNK
     Route: 048
  117. LISINOPRIL [Suspect]
     Active Substance: LISINOPRIL
     Indication: Hypertension
     Dosage: UNK
     Route: 048
  118. LISINOPRIL [Suspect]
     Active Substance: LISINOPRIL
     Dosage: UNK
     Route: 048
  119. METFORMIN HYDROCHLORIDE [Suspect]
     Active Substance: METFORMIN HYDROCHLORIDE
     Indication: Product used for unknown indication
     Dosage: UNK
     Route: 065
  120. METFORMIN HYDROCHLORIDE [Suspect]
     Active Substance: METFORMIN HYDROCHLORIDE
     Dosage: UNK
     Route: 048
  121. METHOTREXATE [Suspect]
     Active Substance: METHOTREXATE
     Indication: Product used for unknown indication
     Dosage: UNK
     Route: 065
  122. METHOTREXATE [Suspect]
     Active Substance: METHOTREXATE
     Dosage: UNK
     Route: 064
  123. METHYLPREDNISOLONE SODIUM SUCCINATE [Suspect]
     Active Substance: METHYLPREDNISOLONE SODIUM SUCCINATE
     Indication: Premedication
     Dosage: 100 MG, 1 EVERY 1 DAY
     Route: 042
  124. METHYLPREDNISOLONE SODIUM SUCCINATE [Suspect]
     Active Substance: METHYLPREDNISOLONE SODIUM SUCCINATE
     Dosage: 100 MG, 1 EVERY 1 DAY
     Route: 042
  125. MORPHINE SULFATE [Suspect]
     Active Substance: MORPHINE SULFATE
     Indication: Product used for unknown indication
     Route: 065
  126. MORPHINE SULFATE [Suspect]
     Active Substance: MORPHINE SULFATE
     Dosage: UNK
     Route: 030
  127. MORPHINE SULFATE [Suspect]
     Active Substance: MORPHINE SULFATE
     Indication: Product used for unknown indication
     Route: 030
  128. MORPHINE SULFATE [Suspect]
     Active Substance: MORPHINE SULFATE
     Route: 065
  129. NEXIUM [Suspect]
     Active Substance: ESOMEPRAZOLE MAGNESIUM
     Indication: Product used for unknown indication
     Route: 065
  130. NEXIUM I.V. [Suspect]
     Active Substance: ESOMEPRAZOLE SODIUM
     Indication: Product used for unknown indication
     Route: 042
  131. NEXIUM 24HR [Suspect]
     Active Substance: ESOMEPRAZOLE MAGNESIUM
     Indication: Product used for unknown indication
     Dosage: UNK
     Route: 065
  132. NEXIUM 24HR [Suspect]
     Active Substance: ESOMEPRAZOLE MAGNESIUM
     Dosage: UNK
     Route: 048
  133. NEXIUM 24HR [Suspect]
     Active Substance: ESOMEPRAZOLE MAGNESIUM
     Indication: Product used for unknown indication
     Route: 048
  134. ONDANSETRON [Suspect]
     Active Substance: ONDANSETRON
     Indication: Product used for unknown indication
     Route: 065
  135. ONDANSETRON HYDROCHLORIDE [Suspect]
     Active Substance: ONDANSETRON HYDROCHLORIDE
     Indication: Product used for unknown indication
     Dosage: UNK
     Route: 065
  136. ONDANSETRON HYDROCHLORIDE [Suspect]
     Active Substance: ONDANSETRON HYDROCHLORIDE
     Dosage: UNK
     Route: 065
  137. ONDANSETRON HYDROCHLORIDE [Suspect]
     Active Substance: ONDANSETRON HYDROCHLORIDE
     Dosage: UNK
     Route: 065
  138. PREDNISONE [Suspect]
     Active Substance: PREDNISONE
     Indication: Product used for unknown indication
     Route: 065
  139. PREDNISONE [Suspect]
     Active Substance: PREDNISONE
     Indication: Product used for unknown indication
     Route: 065
  140. PROCHLORPERAZINE [Suspect]
     Active Substance: PROCHLORPERAZINE
     Indication: Vomiting
     Route: 065
  141. PROCHLORPERAZINE [Suspect]
     Active Substance: PROCHLORPERAZINE
     Indication: Vomiting
     Route: 065
  142. PROCHLORPERAZINE MALEATE [Suspect]
     Active Substance: PROCHLORPERAZINE MALEATE
     Indication: Vomiting
     Route: 065
  143. RAMIPRIL [Suspect]
     Active Substance: RAMIPRIL
     Indication: Product used for unknown indication
     Route: 048
  144. RITUXAN [Suspect]
     Active Substance: RITUXIMAB
     Indication: Sjogren^s syndrome
     Dosage: 1000 MG
     Route: 042
  145. RITUXAN [Suspect]
     Active Substance: RITUXIMAB
     Indication: Rheumatoid arthritis
     Dosage: UNK
     Route: 042
  146. SITAGLIPTIN PHOSPHATE [Suspect]
     Active Substance: SITAGLIPTIN PHOSPHATE
     Indication: Product used for unknown indication
     Route: 065
  147. PROCHLORPERAZINE [Suspect]
     Active Substance: PROCHLORPERAZINE
     Indication: Vomiting
     Route: 065
  148. PROCHLORPERAZINE [Suspect]
     Active Substance: PROCHLORPERAZINE
     Indication: Vomiting
     Route: 065
  149. PROCHLORPERAZINE [Suspect]
     Active Substance: PROCHLORPERAZINE
     Indication: Vomiting
     Route: 065
  150. SYNTHROID [Suspect]
     Active Substance: LEVOTHYROXINE SODIUM
     Indication: Product used for unknown indication
     Route: 065
  151. SYNTHROID [Suspect]
     Active Substance: LEVOTHYROXINE SODIUM
     Indication: Product used for unknown indication
     Dosage: UNK
     Route: 065
  152. SYNTHROID [Suspect]
     Active Substance: LEVOTHYROXINE SODIUM
     Dosage: UNK
     Route: 065
  153. ZOFRAN [Suspect]
     Active Substance: ONDANSETRON HYDROCHLORIDE
     Indication: Product used for unknown indication
     Route: 065
  154. ZOFRAN [Suspect]
     Active Substance: ONDANSETRON HYDROCHLORIDE
     Indication: Product used for unknown indication
     Route: 065
  155. ACETAMINOPHEN [Concomitant]
     Active Substance: ACETAMINOPHEN
     Dosage: 650 MILLIGRAM
     Route: 048
  156. ACETAMINOPHEN [Concomitant]
     Active Substance: ACETAMINOPHEN
     Dosage: UNK
     Route: 065
  157. ACITRETIN [Concomitant]
     Active Substance: ACITRETIN
     Indication: Product used for unknown indication
     Route: 065
  158. AMEVIVE [Concomitant]
     Active Substance: ALEFACEPT
     Indication: Product used for unknown indication
     Dosage: UNK
     Route: 065
  159. AMEVIVE [Concomitant]
     Active Substance: ALEFACEPT
     Dosage: UNK
     Route: 030
  160. HYDROCHLOROTHIAZIDE [Concomitant]
     Active Substance: HYDROCHLOROTHIAZIDE
     Indication: Product used for unknown indication
     Route: 065
  161. HYDROCHLOROTHIAZIDE [Concomitant]
     Active Substance: HYDROCHLOROTHIAZIDE
     Dosage: UNK
     Route: 065
  162. HYDROCHLOROTHIAZIDE [Concomitant]
     Active Substance: HYDROCHLOROTHIAZIDE
     Dosage: UNK
     Route: 065
  163. HYDROCHLOROTHIAZIDE [Concomitant]
     Active Substance: HYDROCHLOROTHIAZIDE
     Indication: Product used for unknown indication
     Dosage: UNK
     Route: 048
  164. HYDROCHLOROTHIAZIDE [Concomitant]
     Active Substance: HYDROCHLOROTHIAZIDE
     Dosage: UNK
     Route: 065
  165. ASPIRIN [Concomitant]
     Active Substance: ASPIRIN
     Indication: Product used for unknown indication
     Dosage: UNK
     Route: 065
  166. ASPIRIN [Concomitant]
     Active Substance: ASPIRIN
     Dosage: 81 MILLIGRAM
     Route: 065
  167. AVAPRO [Concomitant]
     Active Substance: IRBESARTAN
     Dosage: UNK
     Route: 065
  168. COAL TAR [Concomitant]
     Active Substance: COAL TAR
     Indication: Product used for unknown indication
     Dosage: UNK
     Route: 065
  169. CYMBALTA [Concomitant]
     Active Substance: DULOXETINE HYDROCHLORIDE
     Indication: Product used for unknown indication
     Route: 065
  170. DEPO-MEDROL [Concomitant]
     Active Substance: METHYLPREDNISOLONE ACETATE
     Indication: Product used for unknown indication
     Dosage: UNK
     Route: 065
  171. DEPO-MEDROL [Concomitant]
     Active Substance: METHYLPREDNISOLONE ACETATE
     Dosage: UNK
  172. DEPO-MEDROL [Concomitant]
     Active Substance: METHYLPREDNISOLONE ACETATE
     Dosage: UNK
  173. DEPO-MEDROL [Concomitant]
     Active Substance: METHYLPREDNISOLONE ACETATE
     Indication: Product used for unknown indication
     Route: 014
  174. DOMPERIDONE [Concomitant]
     Active Substance: DOMPERIDONE
     Indication: Product used for unknown indication
     Dosage: UNK
     Route: 048
  175. DOMPERIDONE [Concomitant]
     Active Substance: DOMPERIDONE
     Dosage: UNK
     Route: 065
  176. DOMPERIDONE [Concomitant]
     Active Substance: DOMPERIDONE
  177. DOMPERIDONE MALEATE [Concomitant]
     Active Substance: DOMPERIDONE MALEATE
     Indication: Product used for unknown indication
     Route: 065
  178. DOVONEX [Concomitant]
     Active Substance: CALCIPOTRIENE
     Indication: Product used for unknown indication
     Dosage: UNK
     Route: 065
  179. LEVOTHYROXINE [Concomitant]
     Active Substance: LEVOTHYROXINE
     Indication: Product used for unknown indication
     Dosage: UNK
     Route: 048
  180. LEVOTHYROXINE [Concomitant]
     Active Substance: LEVOTHYROXINE
     Dosage: UNK
     Route: 065
  181. LEVOTHYROXINE [Concomitant]
     Active Substance: LEVOTHYROXINE
     Dosage: UNK
     Route: 065
  182. LEVOTHYROXINE [Concomitant]
     Active Substance: LEVOTHYROXINE
     Dosage: UNK
  183. LEVOTHYROXINE [Concomitant]
     Active Substance: LEVOTHYROXINE
     Dosage: UNK
  184. ESOMEPRAZOLE MAGNESIUM [Concomitant]
     Active Substance: ESOMEPRAZOLE MAGNESIUM
     Dosage: UNK
  185. ESOMEPRAZOLE MAGNESIUM [Concomitant]
     Active Substance: ESOMEPRAZOLE MAGNESIUM
     Indication: Product used for unknown indication
     Route: 065
  186. EZETIMIBE [Concomitant]
     Active Substance: EZETIMIBE
     Indication: Product used for unknown indication
     Dosage: UNK
     Route: 065
  187. EZETIMIBE [Concomitant]
     Active Substance: EZETIMIBE
     Dosage: UNK
     Route: 048
  188. EZETIMIBE [Concomitant]
     Active Substance: EZETIMIBE
     Dosage: UNK
     Route: 065
  189. EZETIMIBE [Concomitant]
     Active Substance: EZETIMIBE
     Dosage: UNK
  190. EZETIMIBE [Concomitant]
     Active Substance: EZETIMIBE
     Dosage: UNK
  191. HUMALOG [Concomitant]
     Active Substance: INSULIN LISPRO
     Indication: Product used for unknown indication
     Dosage: UNK
     Route: 065
  192. HUMALOG [Concomitant]
     Active Substance: INSULIN LISPRO
     Dosage: UNK
  193. HUMALOG [Concomitant]
     Active Substance: INSULIN LISPRO
     Dosage: UNK
  194. JANUVIA [Concomitant]
     Active Substance: SITAGLIPTIN PHOSPHATE
     Indication: Product used for unknown indication
     Dosage: UNK
     Route: 065
  195. JANUVIA [Concomitant]
     Active Substance: SITAGLIPTIN PHOSPHATE
     Dosage: UNK
  196. JANUVIA [Concomitant]
     Active Substance: SITAGLIPTIN PHOSPHATE
     Dosage: UNK
  197. JANUVIA [Concomitant]
     Active Substance: SITAGLIPTIN PHOSPHATE
     Indication: Product used for unknown indication
     Dosage: UNK
  198. JANUVIA [Concomitant]
     Active Substance: SITAGLIPTIN PHOSPHATE
     Dosage: UNK
     Route: 065
  199. JANUVIA [Concomitant]
     Active Substance: SITAGLIPTIN PHOSPHATE
     Route: 065
  200. LANTUS [Concomitant]
     Active Substance: INSULIN GLARGINE
     Indication: Product used for unknown indication
     Dosage: UNK
     Route: 065
  201. LANTUS [Concomitant]
     Active Substance: INSULIN GLARGINE
     Dosage: UNK
  202. LANTUS [Concomitant]
     Active Substance: INSULIN GLARGINE
     Dosage: UNK
  203. LANTUS [Concomitant]
     Active Substance: INSULIN GLARGINE
     Indication: Product used for unknown indication
  204. LANTUS [Concomitant]
     Active Substance: INSULIN GLARGINE
     Dosage: UNK
     Route: 065
  205. LEVEMIR [Concomitant]
     Active Substance: INSULIN DETEMIR
     Indication: Product used for unknown indication
     Dosage: UNK
     Route: 065
  206. LEVEMIR [Concomitant]
     Active Substance: INSULIN DETEMIR
     Dosage: UNK
  207. LEVEMIR [Concomitant]
     Active Substance: INSULIN DETEMIR
     Dosage: UNK
  208. LEVEMIR [Concomitant]
     Active Substance: INSULIN DETEMIR
     Indication: Product used for unknown indication
     Dosage: UNK
  209. LEVEMIR [Concomitant]
     Active Substance: INSULIN DETEMIR
     Dosage: UNK
     Route: 065
  210. LYRICA [Concomitant]
     Active Substance: PREGABALIN
     Indication: Product used for unknown indication
     Dosage: UNK
     Route: 065
  211. LYRICA [Concomitant]
     Active Substance: PREGABALIN
     Dosage: UNK
  212. LYRICA [Concomitant]
     Active Substance: PREGABALIN
     Dosage: UNK
  213. LYRICA [Concomitant]
     Active Substance: PREGABALIN
     Indication: Product used for unknown indication
     Route: 065
  214. METHYLPREDNISOLONE ACETATE [Concomitant]
     Active Substance: METHYLPREDNISOLONE ACETATE
     Indication: Product used for unknown indication
  215. PANTOPRAZOLE [Concomitant]
     Active Substance: PANTOPRAZOLE
     Indication: Product used for unknown indication
  216. PANTOPRAZOLE [Concomitant]
     Active Substance: PANTOPRAZOLE
  217. PANTOPRAZOLE MAGNESIUM [Concomitant]
     Active Substance: PANTOPRAZOLE MAGNESIUM
     Indication: Product used for unknown indication
     Dosage: UNK
  218. PANTOPRAZOLE MAGNESIUM [Concomitant]
     Active Substance: PANTOPRAZOLE MAGNESIUM
     Dosage: UNK
     Route: 065
  219. PANTOPRAZOLE SODIUM [Concomitant]
     Active Substance: PANTOPRAZOLE SODIUM
     Indication: Product used for unknown indication
     Dosage: UNK
     Route: 065
  220. PANTOPRAZOLE SODIUM [Concomitant]
     Active Substance: PANTOPRAZOLE SODIUM
     Dosage: UNK
     Route: 065
  221. PANTOPRAZOLE SODIUM ANHYDROUS [Concomitant]
     Active Substance: PANTOPRAZOLE SODIUM ANHYDROUS
     Route: 065
  222. PANTOPRAZOLE SODIUM [Concomitant]
     Active Substance: PANTOPRAZOLE SODIUM
     Indication: Product used for unknown indication
     Dosage: UNK
     Route: 065
  223. PANTOPRAZOLE SODIUM [Concomitant]
     Active Substance: PANTOPRAZOLE SODIUM
     Dosage: UNK
     Route: 065
  224. ROSUVASTATIN CALCIUM [Concomitant]
     Active Substance: ROSUVASTATIN CALCIUM
     Indication: Product used for unknown indication
     Dosage: UNK
     Route: 065
  225. ROSUVASTATIN CALCIUM [Concomitant]
     Active Substance: ROSUVASTATIN CALCIUM
     Dosage: UNK
  226. ROSUVASTATIN CALCIUM [Concomitant]
     Active Substance: ROSUVASTATIN CALCIUM
     Dosage: UNK
     Route: 065
  227. ROSUVASTATIN CALCIUM [Concomitant]
     Active Substance: ROSUVASTATIN CALCIUM
     Indication: Product used for unknown indication
     Dosage: UNK
     Route: 065
  228. ROSUVASTATIN CALCIUM [Concomitant]
     Active Substance: ROSUVASTATIN CALCIUM
     Dosage: UNK
     Route: 065
  229. STELARA [Concomitant]
     Active Substance: USTEKINUMAB
     Indication: Product used for unknown indication
     Dosage: UNK
     Route: 065
  230. STELARA [Concomitant]
     Active Substance: USTEKINUMAB
     Dosage: UNK
     Route: 058
  231. TELMISARTAN [Concomitant]
     Active Substance: TELMISARTAN
     Indication: Product used for unknown indication
     Route: 065
  232. TYLENOL [Concomitant]
     Active Substance: ACETAMINOPHEN
     Indication: Product used for unknown indication
     Dosage: 650 MG
     Route: 048
  233. TYLENOL [Concomitant]
     Active Substance: ACETAMINOPHEN
     Indication: Product used for unknown indication
     Dosage: 650 MG
     Route: 048
  234. TYLENOL [Concomitant]
     Active Substance: ACETAMINOPHEN
     Dosage: UNK
     Route: 065
  235. TYLENOL [Concomitant]
     Active Substance: ACETAMINOPHEN
     Dosage: 650 MG
     Route: 048
  236. ZOLPIDEM [Concomitant]
     Active Substance: ZOLPIDEM TARTRATE
     Dosage: UNK
     Route: 065
  237. ZOLPIDEM [Concomitant]
     Active Substance: ZOLPIDEM TARTRATE
     Indication: Product used for unknown indication
     Route: 065
  238. ZOLPIDEM [Concomitant]
     Active Substance: ZOLPIDEM TARTRATE
     Indication: Product used for unknown indication
     Route: 048

REACTIONS (54)
  - Adjustment disorder [Not Recovered/Not Resolved]
  - Affect lability [Not Recovered/Not Resolved]
  - Aphasia [Not Recovered/Not Resolved]
  - Arterial occlusive disease [Not Recovered/Not Resolved]
  - Arthritis [Not Recovered/Not Resolved]
  - Carotid artery thrombosis [Not Recovered/Not Resolved]
  - Cataract [Not Recovered/Not Resolved]
  - Cerebrovascular accident [Not Recovered/Not Resolved]
  - Chest discomfort [Not Recovered/Not Resolved]
  - Coordination abnormal [Not Recovered/Not Resolved]
  - Dysarthria [Not Recovered/Not Resolved]
  - Dysphagia [Not Recovered/Not Resolved]
  - Eating disorder [Not Recovered/Not Resolved]
  - Fall [Not Recovered/Not Resolved]
  - Hemiplegia [Not Recovered/Not Resolved]
  - Influenza like illness [Not Recovered/Not Resolved]
  - Malaise [Not Recovered/Not Resolved]
  - Motor dysfunction [Not Recovered/Not Resolved]
  - Muscle spasticity [Not Recovered/Not Resolved]
  - Muscular weakness [Not Recovered/Not Resolved]
  - Neurologic neglect syndrome [Not Recovered/Not Resolved]
  - Personality disorder [Not Recovered/Not Resolved]
  - Psoriasis [Not Recovered/Not Resolved]
  - Rheumatoid arthritis [Not Recovered/Not Resolved]
  - Respiratory tract congestion [Not Recovered/Not Resolved]
  - Sensory loss [Not Recovered/Not Resolved]
  - Sinus congestion [Not Recovered/Not Resolved]
  - Sinus disorder [Not Recovered/Not Resolved]
  - Skin exfoliation [Not Recovered/Not Resolved]
  - Skin haemorrhage [Not Recovered/Not Resolved]
  - Angina pectoris [Not Recovered/Not Resolved]
  - Anxiety [Not Recovered/Not Resolved]
  - Asthenia [Not Recovered/Not Resolved]
  - Blood pressure increased [Not Recovered/Not Resolved]
  - Confusional state [Not Recovered/Not Resolved]
  - Cough [Not Recovered/Not Resolved]
  - Cystitis [Not Recovered/Not Resolved]
  - Fatigue [Not Recovered/Not Resolved]
  - Gangrene [Not Recovered/Not Resolved]
  - Gastric disorder [Not Recovered/Not Resolved]
  - Headache [Not Recovered/Not Resolved]
  - Hemiparesis [Not Recovered/Not Resolved]
  - Influenza [Not Recovered/Not Resolved]
  - Nausea [Not Recovered/Not Resolved]
  - Nasopharyngitis [Not Recovered/Not Resolved]
  - Palpitations [Not Recovered/Not Resolved]
  - Pain [Not Recovered/Not Resolved]
  - Pyrexia [Not Recovered/Not Resolved]
  - Pneumonia [Not Recovered/Not Resolved]
  - Rhinorrhoea [Not Recovered/Not Resolved]
  - Sinusitis [Not Recovered/Not Resolved]
  - Sneezing [Not Recovered/Not Resolved]
  - Vomiting [Not Recovered/Not Resolved]
  - Off label use [Unknown]
